FAERS Safety Report 9112850 (Version 1)
Quarter: 2013Q1

REPORT INFORMATION
  Report Type: Spontaneous
  Country: US (occurrence: US)
  Receive Date: 20130211
  Receipt Date: 20130211
  Transmission Date: 20140127
  Serious: No
  Sender: FDA-Public Use
  Company Number: US-ASTRAZENECA-2013SE06723

PATIENT
  Age: 61 Year
  Sex: Male

DRUGS (13)
  1. LISINOPRIL [Suspect]
     Route: 048
  2. CAPRELSA [Suspect]
     Indication: THYROID CANCER
     Route: 048
  3. ASPIRIN [Concomitant]
  4. DEXAMETHASONE [Concomitant]
  5. LANTUS [Concomitant]
  6. LEVOTHYROXINE [Concomitant]
  7. LIPITOR [Concomitant]
  8. LOPERAMIDE [Concomitant]
  9. LORATAB [Concomitant]
  10. METFORMIN [Concomitant]
  11. NEUROTIN [Concomitant]
  12. PROMETHAZINE [Concomitant]
  13. WARFARIN [Concomitant]

REACTIONS (2)
  - Decreased appetite [Unknown]
  - Fatigue [Unknown]
